FAERS Safety Report 9126989 (Version 1)
Quarter: 2013Q1

REPORT INFORMATION
  Report Type: Spontaneous
  Country: FR (occurrence: FR)
  Receive Date: 20130122
  Receipt Date: 20130122
  Transmission Date: 20140127
  Serious: Yes (Hospitalization, Disabling)
  Sender: FDA-Public Use
  Company Number: FR-VIIV HEALTHCARE LIMITED-B0858200A

PATIENT
  Sex: Female

DRUGS (2)
  1. COMBIVIR [Suspect]
     Indication: ACCIDENTAL EXPOSURE TO PRODUCT
     Dosage: 1TAB TWICE PER DAY
     Route: 048
     Dates: start: 20000530, end: 20000630
  2. VIRACEPT [Suspect]
     Indication: ACCIDENTAL EXPOSURE TO PRODUCT
     Dosage: 750MG THREE TIMES PER DAY
     Route: 048
     Dates: start: 20000530, end: 20000630

REACTIONS (18)
  - Sjogren^s syndrome [Not Recovered/Not Resolved]
  - Asthenia [Not Recovered/Not Resolved]
  - Autoimmune thyroiditis [Not Recovered/Not Resolved]
  - Arthralgia [Not Recovered/Not Resolved]
  - Neuropathy peripheral [Not Recovered/Not Resolved]
  - Pain in extremity [Not Recovered/Not Resolved]
  - Dry mouth [Not Recovered/Not Resolved]
  - Dry eye [Not Recovered/Not Resolved]
  - Myalgia [Not Recovered/Not Resolved]
  - Gait disturbance [Not Recovered/Not Resolved]
  - Depression [Not Recovered/Not Resolved]
  - Wheelchair user [Unknown]
  - Hypoaesthesia [Not Recovered/Not Resolved]
  - Balance disorder [Not Recovered/Not Resolved]
  - Myositis [Not Recovered/Not Resolved]
  - Tendonitis [Not Recovered/Not Resolved]
  - Ligament pain [Not Recovered/Not Resolved]
  - Tendon pain [None]
